FAERS Safety Report 17803754 (Version 1)
Quarter: 2020Q2

REPORT INFORMATION
  Report Type: Spontaneous
  Country: DK (occurrence: DK)
  Receive Date: 20200519
  Receipt Date: 20200519
  Transmission Date: 20200714
  Serious: Yes (Hospitalization)
  Sender: FDA-Public Use
  Company Number: DK-JNJFOC-20200513420

PATIENT
  Age: 37 Year
  Sex: Male

DRUGS (1)
  1. REGAINE FORTE [Suspect]
     Active Substance: MINOXIDIL
     Indication: ALOPECIA
     Dosage: UNKNOWN
     Route: 003
     Dates: start: 1988, end: 2000

REACTIONS (6)
  - Loeffler^s syndrome [Unknown]
  - Skin wound [Unknown]
  - Asthma [Unknown]
  - Eosinophilia [Unknown]
  - Dizziness [Unknown]
  - Dyspnoea [Unknown]

NARRATIVE: CASE EVENT DATE: 19890305
